FAERS Safety Report 6028956-4 (Version None)
Quarter: 2009Q1

REPORT INFORMATION
  Report Type: 
  Country: None (occurrence: None)
  Receive Date: 20090106
  Receipt Date: 20081229
  Transmission Date: 20090719
  Serious: Yes (Hospitalization, Other)
  Sender: FDA-Public Use
  Company Number: PHHY2008IL33308

PATIENT
  Age: 12 Year
  Sex: Female

DRUGS (1)
  1. RITALIN LA [Suspect]
     Indication: ATTENTION DEFICIT/HYPERACTIVITY DISORDER
     Dosage: 30 MG, ONCE/SINGLE
     Route: 048
     Dates: start: 20081223, end: 20081223

REACTIONS (8)
  - CONFUSIONAL STATE [None]
  - CONVERSION DISORDER [None]
  - COPROLALIA [None]
  - EYE IRRITATION [None]
  - GAIT DISTURBANCE [None]
  - HEADACHE [None]
  - PETIT MAL EPILEPSY [None]
  - SOMNOLENCE [None]
